FAERS Safety Report 8058470-6 (Version None)
Quarter: 2012Q1

REPORT INFORMATION
  Report Type: 
  Country: None (occurrence: None)
  Receive Date: 20120120
  Receipt Date: 20120118
  Transmission Date: 20120608
  Serious: Yes (Other)
  Sender: FDA-Public Use
  Company Number: DE-PFIZER INC-2012014958

PATIENT
  Age: 84 Year
  Sex: Female

DRUGS (2)
  1. NORVASC [Suspect]
     Dosage: UNK
     Dates: start: 20110701
  2. DIOVAN [Concomitant]

REACTIONS (1)
  - SYSTEMIC LUPUS ERYTHEMATOSUS [None]
